FAERS Safety Report 25413524 (Version 1)
Quarter: 2025Q2

REPORT INFORMATION
  Report Type: Spontaneous
  Country: US (occurrence: US)
  Receive Date: 20250609
  Receipt Date: 20250609
  Transmission Date: 20250716
  Serious: No
  Sender: TAIHO ONCOLOGY INC
  Company Number: US-TAIHOP-2025-005827

PATIENT

DRUGS (1)
  1. LYTGOBI [Suspect]
     Active Substance: FUTIBATINIB
     Indication: Product used for unknown indication
     Route: 048

REACTIONS (3)
  - Diarrhoea [Recovered/Resolved]
  - Nail toxicity [Unknown]
  - Off label use [Unknown]
